FAERS Safety Report 9395969 (Version 1)
Quarter: 2013Q3

REPORT INFORMATION
  Report Type: Spontaneous
  Country: US (occurrence: US)
  Receive Date: 20130711
  Receipt Date: 20130711
  Transmission Date: 20140515
  Serious: Yes (Other)
  Sender: FDA-Public Use
  Company Number: US-PFIZER INC-2013203259

PATIENT
  Age: 52 Year
  Sex: Female
  Weight: 81.17 kg

DRUGS (7)
  1. ZOLOFT [Suspect]
     Indication: DEPRESSION
     Dosage: UNK
     Dates: start: 1993
  2. EFFEXOR [Suspect]
     Indication: VICTIM OF SEXUAL ABUSE
     Dosage: UNK
     Dates: start: 1993
  3. EFFEXOR [Suspect]
     Indication: SOCIAL PROBLEM
  4. WELLBUTRIN [Suspect]
     Indication: DEPRESSION
     Dosage: UNK
     Dates: start: 1993
  5. PROZAC [Suspect]
     Indication: DEPRESSION
     Dosage: UNK
     Dates: start: 1993
  6. VICODIN [Suspect]
     Indication: PAIN
     Dosage: UNK
  7. PHENTERMINE [Suspect]
     Indication: APPETITE DISORDER
     Dosage: 37.5 MG, UNK

REACTIONS (8)
  - Diabetes mellitus [Unknown]
  - Hypertension [Unknown]
  - Weight increased [Unknown]
  - Blood cholesterol abnormal [Unknown]
  - Nightmare [Recovered/Resolved]
  - Crying [Recovered/Resolved]
  - Insomnia [Unknown]
  - Drug ineffective [Unknown]
